FAERS Safety Report 25373148 (Version 1)
Quarter: 2025Q2

REPORT INFORMATION
  Report Type: Spontaneous
  Country: US (occurrence: US)
  Receive Date: 20250529
  Receipt Date: 20250529
  Transmission Date: 20250716
  Serious: No
  Sender: CIPLA
  Company Number: US-CIPLA LTD.-2025US00356

PATIENT

DRUGS (1)
  1. ALBUTEROL [Suspect]
     Active Substance: ALBUTEROL
     Indication: Chronic obstructive pulmonary disease
     Dosage: 180 MCG, BID (2 PUFFS IN THE MORNING 2 PUFFS AT NIGHT)
     Route: 065
     Dates: start: 20241228

REACTIONS (2)
  - Product use complaint [Unknown]
  - Device leakage [Unknown]

NARRATIVE: CASE EVENT DATE: 20241230
